FAERS Safety Report 8617652-2 (Version None)
Quarter: 2012Q3

REPORT INFORMATION
  Report Type: 
  Country: None (occurrence: None)
  Receive Date: 20120824
  Receipt Date: 20120111
  Transmission Date: 20120928
  Serious: No
  Sender: FDA-Public Use
  Company Number: US-ASTRAZENECA-2012SE02533

PATIENT
  Age: 50 Year
  Sex: Female
  Weight: 138.8 kg

DRUGS (7)
  1. LIPITOR [Concomitant]
     Route: 048
  2. TOPROL-XL [Suspect]
     Route: 048
  3. VENTOLIN [Concomitant]
     Dosage: 108 MCG/ACT/ACT INHALER, 2 PUFFS EVERY 4 HOURS AS NEEDED
     Route: 055
  4. SYMBICORT [Suspect]
     Dosage: 160/4.5 MCG/ACT INHALER, 2 PUFFS 2 TIMES DAILY
     Route: 055
  5. NITROSTAT [Concomitant]
     Dosage: 0.4 MG UNDER TONGUE EVERY 5 MINUTES AS NEEDED
     Route: 060
  6. PAXIL [Concomitant]
     Route: 048
  7. ZANAFLEX [Concomitant]
     Route: 048

REACTIONS (3)
  - SLEEP APNOEA SYNDROME [None]
  - TOBACCO ABUSE [None]
  - ASTHMA [None]
